FAERS Safety Report 8158361-6 (Version None)
Quarter: 2012Q1

REPORT INFORMATION
  Report Type: 
  Country: None (occurrence: None)
  Receive Date: 20120217
  Receipt Date: 20120130
  Transmission Date: 20120608
  Serious: Yes (Hospitalization)
  Sender: FDA-Public Use
  Company Number: 12-ADE-SU-0019-ACT

PATIENT
  Age: 64 Year
  Sex: Male

DRUGS (9)
  1. ROCALTROL [Concomitant]
  2. LASIX [Concomitant]
  3. LISINOPRIL [Concomitant]
  4. METOLAZONE [Concomitant]
  5. H.P. ACTHAR GEL [Suspect]
     Indication: GLOMERULONEPHRITIS MEMBRANOUS
     Dosage: 80 IU IM TWICE A WEEK
     Dates: start: 20111117, end: 20120127
  6. MINOXIDIL [Concomitant]
  7. ZOCOR [Concomitant]
  8. CITALOPRAM HYDROBROMIDE [Concomitant]
  9. CALCIUM CARBONATE [Concomitant]

REACTIONS (5)
  - RENAL FAILURE ACUTE [None]
  - ACUTE ABDOMEN [None]
  - DIVERTICULAR PERFORATION [None]
  - DIARRHOEA [None]
  - REFUSAL OF TREATMENT BY PATIENT [None]
